FAERS Safety Report 6633990-7 (Version None)
Quarter: 2010Q1

REPORT INFORMATION
  Report Type: 
  Country: None (occurrence: None)
  Receive Date: 20100315
  Receipt Date: 20100303
  Transmission Date: 20100710
  Serious: Yes (Other)
  Sender: FDA-Public Use
  Company Number: PHHY2009BE48606

PATIENT
  Age: 82 Year
  Sex: Male

DRUGS (1)
  1. ZOMETA [Suspect]
     Indication: PROSTATE CANCER METASTATIC

REACTIONS (5)
  - BONE EROSION [None]
  - BONE LESION [None]
  - ORAL DISCOMFORT [None]
  - OSTEONECROSIS [None]
  - TOOTH EXTRACTION [None]
